FAERS Safety Report 8209032 (Version 7)
Quarter: 2013Q1

REPORT INFORMATION
  Report Type: Spontaneous
  Country: US (occurrence: US)
  Receive Date: 20111028
  Receipt Date: 20130329
  Transmission Date: 20140127
  Serious: Yes (Hospitalization, Disabling, Other)
  Sender: FDA-Public Use
  Company Number: US-009507513-1110USA04119

PATIENT
  Sex: Female
  Weight: 56.7 kg

DRUGS (21)
  1. FOSAMAX [Suspect]
     Dosage: 10 MG, UNK
     Route: 048
     Dates: start: 199710, end: 200102
  2. FOSAMAX [Suspect]
     Dosage: 70 MG, UNK
     Route: 048
     Dates: start: 200103
  3. FOSAMAX PLUS D [Suspect]
     Indication: OSTEOPOROSIS
     Dosage: 70-2800
     Route: 048
     Dates: start: 200602, end: 200801
  4. FOSAMAX PLUS D [Suspect]
     Indication: OSTEOPENIA
     Dosage: 70 U, UNK
     Route: 048
     Dates: start: 200802, end: 200901
  5. FOSAMAX PLUS D [Suspect]
     Dosage: 70 MG, QW
     Route: 048
     Dates: start: 20080221, end: 20081107
  6. FOSAMAX [Suspect]
     Dosage: 70 MG, UNK
     Route: 048
     Dates: start: 200902, end: 201001
  7. FOSAMAX [Suspect]
     Dosage: UNK
     Route: 048
     Dates: start: 20090213
  8. FOSAMAX [Suspect]
     Dosage: 70 MG, UNK
     Route: 048
     Dates: start: 20090629, end: 20091213
  9. BONIVA [Suspect]
     Indication: OSTEOPOROSIS
     Dosage: 150 MG, UNK
     Route: 048
     Dates: start: 20050924, end: 200601
  10. MK-9278 [Concomitant]
     Dosage: 1 U, QD
     Dates: start: 1970
  11. CHOLECALCIFEROL [Concomitant]
     Indication: OSTEOPOROSIS
     Dosage: 5000 IU, QD
     Dates: start: 1997
  12. CALCIUM (UNSPECIFIED) (+) VITAMIN D (UNSPECIFIED) [Concomitant]
     Indication: OSTEOPOROSIS
     Dosage: 600/200
     Dates: start: 1997
  13. HORMONES (UNSPECIFIED) [Concomitant]
     Dates: start: 1986, end: 2011
  14. ULTRAM [Concomitant]
  15. TYLENOL [Concomitant]
  16. PREMPRO [Concomitant]
     Indication: OSTEOPOROSIS
  17. NORTRIPTYLINE [Concomitant]
  18. PERCOCET [Concomitant]
  19. CALCIUM (UNSPECIFIED) [Concomitant]
     Indication: OSTEOPOROSIS
  20. VITAMIN D (UNSPECIFIED) [Concomitant]
  21. PREMARIN [Concomitant]

REACTIONS (90)
  - Low turnover osteopathy [Unknown]
  - Breast cancer stage I [Unknown]
  - Osteoarthritis [Unknown]
  - Osteoarthritis [Unknown]
  - Uterine disorder [Unknown]
  - Fallopian tube disorder [Unknown]
  - Osteonecrosis [Unknown]
  - Fracture delayed union [Unknown]
  - Femur fracture [Unknown]
  - Tooth disorder [Unknown]
  - Hand fracture [Unknown]
  - Dyslipidaemia [Unknown]
  - Depression [Unknown]
  - Polymyalgia rheumatica [Unknown]
  - Foot fracture [Unknown]
  - Bone metabolism disorder [Unknown]
  - Hypophosphatasia [Unknown]
  - Calcium ionised [Unknown]
  - Fracture [Unknown]
  - Adverse drug reaction [Unknown]
  - Anaemia postoperative [Recovering/Resolving]
  - Bipolar disorder [Unknown]
  - Joint effusion [Unknown]
  - Decreased appetite [Unknown]
  - Fatigue [Unknown]
  - Bladder disorder [Unknown]
  - Upper respiratory tract infection [Unknown]
  - Acute sinusitis [Unknown]
  - Sinusitis [Not Recovered/Not Resolved]
  - Spinal osteoarthritis [Not Recovered/Not Resolved]
  - Vaginal disorder [Unknown]
  - Uterine spasm [Unknown]
  - Uterine cervix stenosis [Unknown]
  - Dysmenorrhoea [Unknown]
  - Faeces hard [Unknown]
  - Ear pain [Unknown]
  - Gastric disorder [Unknown]
  - Tooth infection [Unknown]
  - Staphylococcal infection [Unknown]
  - Upper respiratory tract infection [Unknown]
  - Blood potassium abnormal [Unknown]
  - Gait disturbance [Unknown]
  - Joint injury [Unknown]
  - Joint dislocation [Unknown]
  - Hypokalaemia [Unknown]
  - Intervertebral disc degeneration [Unknown]
  - Rotator cuff syndrome [Unknown]
  - Anxiety [Unknown]
  - Osteoarthritis [Unknown]
  - Sciatica [Unknown]
  - Piriformis syndrome [Unknown]
  - Contusion [Unknown]
  - Osteoarthritis [Unknown]
  - Underweight [Unknown]
  - Oestrogen deficiency [Unknown]
  - Monoclonal immunoglobulin present [Unknown]
  - Micturition urgency [Unknown]
  - Urinary incontinence [Unknown]
  - Urinary tract infection [Unknown]
  - Bone fragmentation [Unknown]
  - Condition aggravated [Unknown]
  - Urethral stenosis [Unknown]
  - Asthma [Unknown]
  - Migraine [Unknown]
  - Scar [Unknown]
  - Tonsillar disorder [Unknown]
  - Bone disorder [Unknown]
  - Fall [Unknown]
  - Fatigue [Unknown]
  - Arthropathy [Unknown]
  - Ulna fracture [Recovering/Resolving]
  - Hypertonic bladder [Unknown]
  - Wrist fracture [Recovering/Resolving]
  - Neuropathic arthropathy [Not Recovered/Not Resolved]
  - Osteolysis [Unknown]
  - Malaise [Unknown]
  - Insomnia [Recovering/Resolving]
  - Dyspepsia [Unknown]
  - Drug ineffective [Unknown]
  - Swelling face [Unknown]
  - Local swelling [Unknown]
  - Headache [Unknown]
  - Arthralgia [Not Recovered/Not Resolved]
  - Arthralgia [Unknown]
  - Joint swelling [Unknown]
  - Pain in extremity [Unknown]
  - Oedema peripheral [Unknown]
  - Gastrooesophageal reflux disease [Unknown]
  - Oedema peripheral [Unknown]
  - Pain in extremity [Unknown]
